FAERS Safety Report 12248244 (Version 1)
Quarter: 2016Q2

REPORT INFORMATION
  Report Type: Spontaneous
  Country: CZ (occurrence: CZ)
  Receive Date: 20160408
  Receipt Date: 20160408
  Transmission Date: 20160815
  Serious: Yes (Life-Threatening, Hospitalization)
  Sender: FDA-Public Use
  Company Number: CZ-ROCHE-1739063

PATIENT
  Age: 71 Year
  Sex: Female
  Weight: 63 kg

DRUGS (9)
  1. DEXAMED (CZECH REPUBLIC) [Concomitant]
     Indication: PREMEDICATION
     Route: 065
     Dates: start: 20151027, end: 20151230
  2. RANITIDINE. [Concomitant]
     Active Substance: RANITIDINE
     Indication: PREMEDICATION
     Dosage: STRENGTH50 MG/2 ML
     Route: 065
     Dates: start: 20151027, end: 20151230
  3. PACLITAXEL. [Concomitant]
     Active Substance: PACLITAXEL
     Dosage: STRENGTH:6 MG/ML
     Route: 042
     Dates: start: 20151027, end: 20151230
  4. PANADOL NOVUM [Concomitant]
     Indication: PREMEDICATION
     Route: 048
     Dates: start: 20151116, end: 20151230
  5. HERCEPTIN [Suspect]
     Active Substance: TRASTUZUMAB
     Indication: OESTROGEN RECEPTOR POSITIVE BREAST CANCER
     Dosage: 16/NOV/2015: DOSE 536MG?18/DEC/2015:DOSE 390MG?30/DEC/2015: DOSE 378MG
     Route: 042
     Dates: start: 20151116, end: 20151230
  6. ONDANSETRAN [Concomitant]
     Active Substance: ONDANSETRON HYDROCHLORIDE
     Indication: PREMEDICATION
     Route: 065
     Dates: start: 20151027, end: 20151230
  7. DITHIADEN [Concomitant]
     Active Substance: BISULEPIN
     Indication: PREMEDICATION
     Route: 065
     Dates: start: 20151027, end: 20151230
  8. RAMIPRIL HCT [Concomitant]
     Active Substance: HYDROCHLOROTHIAZIDE\RAMIPRIL
     Route: 048
  9. KETONAL FORTE [Concomitant]
     Active Substance: KETOPROFEN
     Route: 048

REACTIONS (1)
  - Acute myocardial infarction [Unknown]

NARRATIVE: CASE EVENT DATE: 20160108
